FAERS Safety Report 22973313 (Version 3)
Quarter: 2024Q1

REPORT INFORMATION
  Report Type: Spontaneous
  Country: US (occurrence: US)
  Receive Date: 20230922
  Receipt Date: 20240319
  Transmission Date: 20240410
  Serious: Yes (Hospitalization, Other)
  Sender: FDA-Public Use
  Company Number: US-GLAXOSMITHKLINE-US2023GSK129185

PATIENT

DRUGS (1)
  1. BUPROPION [Suspect]
     Active Substance: BUPROPION
     Indication: Product used for unknown indication
     Dosage: UNK
     Route: 048

REACTIONS (19)
  - Cardiotoxicity [Recovering/Resolving]
  - Arrhythmic storm [Recovering/Resolving]
  - Suicide attempt [Recovered/Resolved]
  - Overdose [Unknown]
  - Toxicity to various agents [Unknown]
  - Seizure [Recovering/Resolving]
  - Tachycardia [Recovering/Resolving]
  - Generalised tonic-clonic seizure [Recovering/Resolving]
  - Disease recurrence [Recovering/Resolving]
  - Shock [Recovering/Resolving]
  - Cardiac contractility decreased [Recovering/Resolving]
  - Pupil fixed [Recovering/Resolving]
  - Ventricular tachycardia [Recovering/Resolving]
  - Cardiac arrest [Recovering/Resolving]
  - Arrhythmia [Recovering/Resolving]
  - Haemodynamic instability [Recovering/Resolving]
  - Hypoxia [Recovering/Resolving]
  - Mydriasis [Recovering/Resolving]
  - Condition aggravated [Recovering/Resolving]
